FAERS Safety Report 17286717 (Version 3)
Quarter: 2020Q2

REPORT INFORMATION
  Report Type: Report from Study
  Country: None (occurrence: US)
  Receive Date: 20200119
  Receipt Date: 20200428
  Transmission Date: 20200713
  Serious: Yes (Hospitalization)
  Sender: FDA-Public Use
  Company Number: US-ABBVIE-19K-163-3195093-00

PATIENT
  Age: 75 Year
  Sex: Female

DRUGS (3)
  1. HUMIRA [Suspect]
     Active Substance: ADALIMUMAB
     Route: 058
     Dates: start: 2020
  2. HUMIRA [Suspect]
     Active Substance: ADALIMUMAB
     Route: 058
     Dates: end: 20200225
  3. HUMIRA [Suspect]
     Active Substance: ADALIMUMAB
     Indication: RHEUMATOID ARTHRITIS
     Route: 058
     Dates: start: 20191015

REACTIONS (23)
  - Joint swelling [Recovering/Resolving]
  - Neck pain [Not Recovered/Not Resolved]
  - Fatigue [Unknown]
  - Dysphonia [Not Recovered/Not Resolved]
  - Joint stiffness [Not Recovered/Not Resolved]
  - Musculoskeletal pain [Not Recovered/Not Resolved]
  - Hypoaesthesia [Not Recovered/Not Resolved]
  - Headache [Not Recovered/Not Resolved]
  - Joint stiffness [Not Recovered/Not Resolved]
  - Productive cough [Recovered/Resolved]
  - Arthralgia [Recovering/Resolving]
  - Oropharyngeal pain [Recovered/Resolved]
  - Drug ineffective [Not Recovered/Not Resolved]
  - Gait disturbance [Not Recovered/Not Resolved]
  - Joint stiffness [Recovering/Resolving]
  - Arthralgia [Not Recovered/Not Resolved]
  - Dyspnoea [Not Recovered/Not Resolved]
  - Respiratory disorder [Unknown]
  - Chronic obstructive pulmonary disease [Unknown]
  - Joint swelling [Not Recovered/Not Resolved]
  - Urinary tract infection [Not Recovered/Not Resolved]
  - Musculoskeletal discomfort [Not Recovered/Not Resolved]
  - Dizziness [Not Recovered/Not Resolved]

NARRATIVE: CASE EVENT DATE: 2019
